FAERS Safety Report 4895212-7 (Version None)
Quarter: 2006Q1

REPORT INFORMATION
  Report Type: 
  Country: None (occurrence: None)
  Receive Date: 20060117
  Receipt Date: 20060104
  Transmission Date: 20060701
  Serious: Yes (Other)
  Sender: FDA-Public Use
  Company Number: THYM-10844

PATIENT

DRUGS (2)
  1. THYMOGLOBULIN [Suspect]
     Indication: HEART TRANSPLANT
  2. THYMOGLOBULIN [Suspect]
     Indication: IMMUNOSUPPRESSION

REACTIONS (3)
  - BLOOD BICARBONATE DECREASED [None]
  - LACTIC ACIDOSIS [None]
  - RIGHT VENTRICULAR FAILURE [None]
